FAERS Safety Report 20931435 (Version 1)
Quarter: 2022Q2

REPORT INFORMATION
  Report Type: Other
  Country: US (occurrence: None)
  Receive Date: 20220608
  Receipt Date: 20220608
  Transmission Date: 20220721
  Serious: Yes (Other)
  Sender: FDA-Public Use
  Company Number: US-ROCHE-3110459

PATIENT
  Sex: Female

DRUGS (3)
  1. POLIVY [Suspect]
     Active Substance: POLATUZUMAB VEDOTIN-PIIQ
     Indication: Diffuse large B-cell lymphoma stage IV
     Dosage: INFUSE 108MG INTRAVENOUSLY ON DAY 2 EVERY 28 DAY(S)
     Route: 041
  2. RITUXAN [Suspect]
     Active Substance: RITUXIMAB
     Indication: Product used for unknown indication
     Dosage: INFUSE 611MG INTRAVENOUSLY ON DAY 1 EVERY 28 DAY(S)
     Route: 041
  3. RITUXAN [Suspect]
     Active Substance: RITUXIMAB
     Dosage: INFUSE 611MG INTRAVENOUSLY ON DAY 1 EVERY 28 DAY(S)
     Route: 041

REACTIONS (2)
  - Off label use [Unknown]
  - Malignant neoplasm progression [Unknown]
